FAERS Safety Report 25364509 (Version 1)
Quarter: 2025Q2

REPORT INFORMATION
  Report Type: Spontaneous
  Country: US (occurrence: US)
  Receive Date: 20250527
  Receipt Date: 20250527
  Transmission Date: 20250716
  Serious: No
  Sender: MYLAN
  Company Number: US-MYLANLABS-2025M1041759

PATIENT
  Sex: Female

DRUGS (1)
  1. ALPRAZOLAM [Suspect]
     Active Substance: ALPRAZOLAM
     Indication: Product used for unknown indication

REACTIONS (5)
  - Gastrointestinal tract irritation [Unknown]
  - Eating disorder [Unknown]
  - Condition aggravated [Unknown]
  - Illness [Unknown]
  - Reaction to excipient [Unknown]
